FAERS Safety Report 4628344-9 (Version None)
Quarter: 2005Q2

REPORT INFORMATION
  Report Type: 
  Country: None (occurrence: None)
  Receive Date: 20050401
  Receipt Date: 20050325
  Transmission Date: 20051028
  Serious: Yes (Hospitalization, Other)
  Sender: FDA-Public Use
  Company Number: KII-2005-0015590

PATIENT
  Age: 62 Year
  Sex: Female

DRUGS (11)
  1. OXYCONTIN [Suspect]
     Dosage: ORAL
     Route: 048
  2. HYDROMORPHONE HCL [Suspect]
     Dosage: ORAL
     Route: 048
  3. HYPNOPTICS AND SEDATIVES () [Suspect]
     Dosage: ORAL
     Route: 048
  4. CALCIUN CHANNEL BLOCKERS [Concomitant]
  5. ANTIINFLAMMATORY/ANTIRHEUMATIC PRODUCTS [Concomitant]
  6. PROTON PUMP INHIBITOR [Concomitant]
  7. SSRI [Concomitant]
  8. ESTROGENS NOS (ESTROGENS NOS) [Concomitant]
  9. ANTIDEPRESSANTS [Concomitant]
  10. ANTIEPILEPTICS [Concomitant]
  11. BETA BLOCKING AGENTS [Concomitant]

REACTIONS (7)
  - ASPARTATE AMINOTRANSFERASE INCREASED [None]
  - INTENTIONAL MISUSE [None]
  - OXYGEN SATURATION DECREASED [None]
  - PNEUMOTHORAX TRAUMATIC [None]
  - SINUS TACHYCARDIA [None]
  - SUICIDE ATTEMPT [None]
  - WHITE BLOOD CELL COUNT INCREASED [None]
